FAERS Safety Report 9253880 (Version 1)
Quarter: 2013Q2

REPORT INFORMATION
  Report Type: Spontaneous
  Country: US (occurrence: None)
  Receive Date: 20130422
  Receipt Date: 20130422
  Transmission Date: 20140414
  Serious: Yes (Other)
  Sender: FDA-Public Use
  Company Number: None

PATIENT
  Age: 73 Year
  Sex: Female
  Weight: 104.33 kg

DRUGS (2)
  1. VALSARTAN AND HYDROCHLOROTHIAZIDE [Suspect]
     Indication: HYPERTENSION
     Route: 048
     Dates: start: 20121112, end: 20121129
  2. HYZAAR [Suspect]
     Route: 048
     Dates: start: 20100727, end: 20101102

REACTIONS (2)
  - Cough [None]
  - Product substitution issue [None]
